FAERS Safety Report 5520294-9 (Version None)
Quarter: 2007Q4

REPORT INFORMATION
  Report Type: 
  Country: None (occurrence: None)
  Receive Date: 20071119
  Receipt Date: 20071109
  Transmission Date: 20080405
  Serious: Yes (Hospitalization, Other)
  Sender: FDA-Public Use
  Company Number: HQWYE030925OCT04

PATIENT

DRUGS (5)
  1. PREMPRO [Suspect]
  2. MEDROXYPROGESTERONE ACETATE [Suspect]
  3. CLIMARA [Suspect]
  4. PREMARIN [Suspect]
  5. MEGESTROL [Suspect]

REACTIONS (3)
  - GALLBLADDER CANCER METASTATIC [None]
  - GASTROINTESTINAL DISORDER [None]
  - HEPATOCELLULAR DAMAGE [None]
